FAERS Safety Report 9970135 (Version 2)
Quarter: 2014Q1

REPORT INFORMATION
  Report Type: Spontaneous
  Country: US (occurrence: US)
  Receive Date: 20140306
  Receipt Date: 20140306
  Transmission Date: 20141002
  Serious: Yes (Other)
  Sender: FDA-Public Use
  Company Number: US-US-EMD SERONO, INC.-7132049

PATIENT
  Sex: Female

DRUGS (7)
  1. REBIF [Suspect]
     Indication: MULTIPLE SCLEROSIS
     Route: 058
  2. REBIF [Suspect]
     Route: 058
     Dates: start: 20120128
  3. CARBAMAZAPINE [Concomitant]
     Indication: CONVULSION
  4. REMERON [Concomitant]
     Indication: DEPRESSION
  5. RISPERIDONE [Concomitant]
     Indication: DEPRESSION
  6. PROZAC [Concomitant]
     Indication: DEPRESSION
  7. KEPPRA [Concomitant]
     Indication: CONVULSION

REACTIONS (4)
  - Convulsion [Not Recovered/Not Resolved]
  - Peroneal nerve palsy [Not Recovered/Not Resolved]
  - Stress [Unknown]
  - Hypoaesthesia [Not Recovered/Not Resolved]
